FAERS Safety Report 20582434 (Version 1)
Quarter: 2022Q1

REPORT INFORMATION
  Report Type: Spontaneous
  Country: US (occurrence: US)
  Receive Date: 20220311
  Receipt Date: 20220311
  Transmission Date: 20220423
  Serious: Yes (Hospitalization, Other)
  Sender: FDA-Public Use
  Company Number: US-AMGEN-USASP2022039173

PATIENT
  Age: 18 Month
  Sex: Female

DRUGS (4)
  1. BLINATUMOMAB [Suspect]
     Active Substance: BLINATUMOMAB
     Indication: Acute biphenotypic leukaemia
     Dosage: UNK
     Route: 065
  2. BUSULFAN [Concomitant]
     Active Substance: BUSULFAN
  3. FLUDARABINE [Concomitant]
     Active Substance: FLUDARABINE PHOSPHATE
  4. THIOTEPA [Concomitant]
     Active Substance: THIOTEPA

REACTIONS (9)
  - Malignant pleural effusion [Unknown]
  - Multisystem inflammatory syndrome in children [Recovering/Resolving]
  - SARS-CoV-2 test positive [Recovered/Resolved]
  - Acute graft versus host disease in skin [Recovering/Resolving]
  - Leukaemic infiltration extramedullary [Recovered/Resolved]
  - Acute biphenotypic leukaemia [Recovered/Resolved]
  - Cytokine release syndrome [Unknown]
  - Neutropenia [Recovered/Resolved]
  - Lung opacity [Unknown]
